FAERS Safety Report 6040803-3 (Version None)
Quarter: 2009Q1

REPORT INFORMATION
  Report Type: 
  Country: None (occurrence: None)
  Receive Date: 20090116
  Receipt Date: 20080530
  Transmission Date: 20090719
  Serious: No
  Sender: FDA-Public Use
  Company Number: US-BRISTOL-MYERS SQUIBB COMPANY-14211619

PATIENT
  Age: 2 Year

DRUGS (1)
  1. ABILIFY [Suspect]
     Dosage: 1 DOSAGE FORM = 1 TABLET (ABILIFY 15MG TAB)

REACTIONS (1)
  - ACCIDENTAL EXPOSURE [None]
